FAERS Safety Report 24700843 (Version 13)
Quarter: 2025Q4

REPORT INFORMATION
  Report Type: Spontaneous
  Country: BR (occurrence: BR)
  Receive Date: 20241205
  Receipt Date: 20251104
  Transmission Date: 20260118
  Serious: Yes (Hospitalization, Other)
  Sender: SANDOZ
  Company Number: BR-002147023-NVSC2024BR201361

PATIENT
  Sex: Female
  Weight: 50 kg

DRUGS (18)
  1. KISQALI [Suspect]
     Active Substance: RIBOCICLIB SUCCINATE
     Dosage: UNK
     Route: 065
  2. KISQALI [Suspect]
     Active Substance: RIBOCICLIB SUCCINATE
     Dosage: 3 DOSAGE FORM, QD
     Route: 065
  3. KISQALI [Suspect]
     Active Substance: RIBOCICLIB SUCCINATE
     Dosage: 3 DOSAGE FORM OTHER ? 3 TABLETS A DAY
     Route: 065
     Dates: start: 20240103
  4. KISQALI [Suspect]
     Active Substance: RIBOCICLIB SUCCINATE
     Dosage: UNK
     Route: 065
  5. KISQALI [Suspect]
     Active Substance: RIBOCICLIB SUCCINATE
     Indication: Breast cancer metastatic
     Dosage: 1 DOSAGE FORM (200 MG), QD (LEAVING 2 LEFT OVER FROM THAT DAY)
     Route: 065
  6. KISQALI [Suspect]
     Active Substance: RIBOCICLIB SUCCINATE
     Indication: Metastases to bone
     Dosage: 3 DOSAGE FORM (200 MG), QD (3 TABLETS A DAY)
     Route: 065
  7. KISQALI [Suspect]
     Active Substance: RIBOCICLIB SUCCINATE
     Dosage: 3 DOSAGE FORM, QD (FOR 21 DAYS AND THEN  DOES THE 07 DAYS BREAK)
     Route: 048
  8. LETROZOLE [Suspect]
     Active Substance: LETROZOLE
     Indication: Breast cancer
     Dosage: 2.5 MG
     Route: 048
  9. LETROZOLE [Suspect]
     Active Substance: LETROZOLE
     Indication: Product used for unknown indication
     Dosage: UNK
     Route: 065
  10. LETROZOLE [Suspect]
     Active Substance: LETROZOLE
     Indication: Metastases to bone
  11. PANTOPRAZOLE [Suspect]
     Active Substance: PANTOPRAZOLE
     Indication: Eating disorder
     Dosage: 40 MG, QD
     Route: 048
  12. PANTOPRAZOLE [Suspect]
     Active Substance: PANTOPRAZOLE
     Indication: Nausea
     Dosage: UNK
     Route: 065
  13. PANTOPRAZOLE [Suspect]
     Active Substance: PANTOPRAZOLE
     Indication: Abdominal discomfort
  14. RIVAROXABAN [Suspect]
     Active Substance: RIVAROXABAN
     Dosage: 1 DF, QD1 DOSAGE FORM, QD
     Route: 048
  15. RIVAROXABAN [Suspect]
     Active Substance: RIVAROXABAN
     Indication: Coagulopathy
     Dosage: 20 MG, OTHER
     Route: 065
  16. ANASTROZOLE [Concomitant]
     Active Substance: ANASTROZOLE
     Indication: Product used for unknown indication
     Dosage: UNK
     Route: 065
  17. CLONAZEPAM [Concomitant]
     Active Substance: CLONAZEPAM
     Indication: Sleep disorder
     Dosage: 1 DOSAGE FORM (2MG), QD (1 TABLET BEFORE  SLEEP)
     Route: 048
  18. CLONAZEPAM [Concomitant]
     Active Substance: CLONAZEPAM
     Indication: Depression

REACTIONS (38)
  - Feeling abnormal [Unknown]
  - Malaise [Recovering/Resolving]
  - Breast cancer [Unknown]
  - Bone cancer [Unknown]
  - Pulmonary embolism [Unknown]
  - Bone pain [Not Recovered/Not Resolved]
  - Pulmonary thrombosis [Unknown]
  - Pulmonary oedema [Recovering/Resolving]
  - Cough [Not Recovered/Not Resolved]
  - Arthralgia [Unknown]
  - Memory impairment [Recovering/Resolving]
  - Epistaxis [Unknown]
  - Negative thoughts [Not Recovered/Not Resolved]
  - Skin discolouration [Unknown]
  - Bone disorder [Unknown]
  - Fall [Unknown]
  - Lung disorder [Not Recovered/Not Resolved]
  - Limb injury [Unknown]
  - Laziness [Unknown]
  - Balance disorder [Unknown]
  - Ill-defined disorder [Unknown]
  - Decreased appetite [Unknown]
  - Dyspnoea [Unknown]
  - Alopecia [Unknown]
  - Speech disorder [Unknown]
  - Sensory loss [Unknown]
  - Condition aggravated [Not Recovered/Not Resolved]
  - Illness [Unknown]
  - Confusional state [Unknown]
  - Head discomfort [Not Recovered/Not Resolved]
  - Pruritus [Unknown]
  - Drug hypersensitivity [Not Recovered/Not Resolved]
  - Sleep disorder [Unknown]
  - Asthenia [Unknown]
  - Fatigue [Unknown]
  - Drug ineffective [Unknown]
  - Incorrect dose administered [Recovered/Resolved]
  - Product distribution issue [Unknown]

NARRATIVE: CASE EVENT DATE: 20240101
